FAERS Safety Report 18765276 (Version 2)
Quarter: 2021Q1

REPORT INFORMATION
  Report Type: Spontaneous
  Country: US (occurrence: US)
  Receive Date: 20210121
  Receipt Date: 20210129
  Transmission Date: 20210419
  Serious: Yes (Hospitalization, Other)
  Sender: FDA-Public Use
  Company Number: US-AUROBINDO-AUR-APL-2021-002161

PATIENT
  Age: 19 Year
  Sex: Male

DRUGS (1)
  1. METFORMIN 500MG [Suspect]
     Active Substance: METFORMIN HYDROCHLORIDE
     Indication: PRODUCT USED FOR UNKNOWN INDICATION
     Dosage: APPROXIMATELY 360 PILLS
     Route: 065

REACTIONS (6)
  - Acute respiratory failure [Unknown]
  - Overdose [Unknown]
  - Acute kidney injury [Recovered/Resolved]
  - Lactic acidosis [Recovering/Resolving]
  - Toxicity to various agents [Unknown]
  - Haemodynamic instability [Unknown]
